FAERS Safety Report 19381043 (Version 1)
Quarter: 2021Q2

REPORT INFORMATION
  Report Type: Spontaneous
  Country: US (occurrence: US)
  Receive Date: 20210604
  Receipt Date: 20210604
  Transmission Date: 20210717
  Serious: Yes (Hospitalization, Disabling)
  Sender: FDA-Public Use
  Company Number: None

PATIENT
  Age: 28 Year
  Sex: Female
  Weight: 49.5 kg

DRUGS (3)
  1. BUSPIRONE HYDROCHLORIDE. [Suspect]
     Active Substance: BUSPIRONE HYDROCHLORIDE
     Indication: ANXIETY
     Dosage: ?          QUANTITY:1 DF DOSAGE FORM;?
     Route: 048
     Dates: start: 20201005, end: 20201014
  2. SERTRALINE [Concomitant]
     Active Substance: SERTRALINE HYDROCHLORIDE
  3. BUSPAR [Concomitant]
     Active Substance: BUSPIRONE HYDROCHLORIDE

REACTIONS (10)
  - Coordination abnormal [None]
  - Chills [None]
  - Pyrexia [None]
  - Diarrhoea [None]
  - Cold sweat [None]
  - Balance disorder [None]
  - Heart rate increased [None]
  - Musculoskeletal stiffness [None]
  - Tremor [None]
  - Dizziness [None]

NARRATIVE: CASE EVENT DATE: 20201005
